FAERS Safety Report 7772695-6 (Version None)
Quarter: 2011Q3

REPORT INFORMATION
  Report Type: 
  Country: None (occurrence: None)
  Receive Date: 20110922
  Receipt Date: 20100412
  Transmission Date: 20111222
  Serious: No
  Sender: FDA-Public Use
  Company Number: US-ASTRAZENECA-2010SE49210

PATIENT
  Age: 13307 Day
  Sex: Female

DRUGS (7)
  1. ZOLOFT [Concomitant]
     Dosage: 50 MG TO 100 MG
     Dates: start: 20040216
  2. LAMICTAL [Concomitant]
     Dates: start: 20070307
  3. SEROQUEL [Suspect]
     Indication: ANXIETY
     Dosage: 25 MG TO 600 MG
     Route: 048
     Dates: start: 20040116
  4. VALIUM [Concomitant]
     Indication: MUSCLE SPASMS
     Dates: start: 20050510
  5. TOPAMAX [Concomitant]
     Dates: start: 20040216
  6. ULTRAM [Concomitant]
     Indication: MUSCULOSKELETAL PAIN
     Dates: start: 20050510
  7. PROZAC [Concomitant]
     Dosage: DECREASE TO 20 MG
     Dates: start: 20070307

REACTIONS (5)
  - BACK PAIN [None]
  - GESTATIONAL DIABETES [None]
  - IRRITABLE BOWEL SYNDROME [None]
  - PAIN [None]
  - TENDONITIS [None]
